FAERS Safety Report 6048519-4 (Version None)
Quarter: 2009Q1

REPORT INFORMATION
  Report Type: 
  Country: None (occurrence: None)
  Receive Date: 20090123
  Receipt Date: 20090114
  Transmission Date: 20090719
  Serious: Yes (Life-Threatening, Hospitalization)
  Sender: FDA-Public Use
  Company Number: D0059664A

PATIENT
  Age: 71 Year
  Sex: Male
  Weight: 74 kg

DRUGS (3)
  1. ARIXTRA [Suspect]
     Indication: ATRIAL FIBRILLATION
     Dosage: 7.5MG SINGLE DOSE
     Route: 058
     Dates: start: 20080905, end: 20080905
  2. LISINOPRIL [Concomitant]
     Indication: HYPERTENSION
     Dosage: 10MG IN THE MORNING
     Route: 065
  3. PRAVASTATIN [Concomitant]
     Indication: HYPERLIPIDAEMIA
     Dosage: 20MG AT NIGHT
     Route: 065

REACTIONS (15)
  - ATRIAL FIBRILLATION [None]
  - BRAIN OEDEMA [None]
  - CARDIOVASCULAR DISORDER [None]
  - CEREBRAL HAEMORRHAGE [None]
  - CORONARY ANGIOPLASTY [None]
  - CORONARY ARTERY RESTENOSIS [None]
  - HAEMORRHAGE INTRACRANIAL [None]
  - HEADACHE [None]
  - HEMIANOPIA [None]
  - ISCHAEMIA [None]
  - OFF LABEL USE [None]
  - RESUSCITATION [None]
  - SOMNOLENCE [None]
  - VENTRICULAR FIBRILLATION [None]
  - VISUAL IMPAIRMENT [None]
